FAERS Safety Report 17080826 (Version 1)
Quarter: 2019Q4

REPORT INFORMATION
  Report Type: Spontaneous
  Country: US (occurrence: US)
  Receive Date: 20191127
  Receipt Date: 20191127
  Transmission Date: 20200122
  Serious: No
  Sender: FDA-Public Use
  Company Number: US-GLAXOSMITHKLINE-US2019207371

PATIENT
  Age: 46 Year
  Sex: Female

DRUGS (2)
  1. ALLI [Suspect]
     Active Substance: ORLISTAT
     Indication: WEIGHT LOSS DIET
     Dosage: UNK
     Route: 065
     Dates: start: 20190925, end: 20190928
  2. ALLI [Suspect]
     Active Substance: ORLISTAT
     Dosage: UNK (7 TO 8 YEARS)
     Route: 065

REACTIONS (2)
  - Steatorrhoea [Unknown]
  - Constipation [Unknown]
